FAERS Safety Report 18415388 (Version 2)
Quarter: 2020Q4

REPORT INFORMATION
  Report Type: Spontaneous
  Country: AU (occurrence: AU)
  Receive Date: 20201022
  Receipt Date: 20201104
  Transmission Date: 20210114
  Serious: Yes (Other)
  Sender: FDA-Public Use
  Company Number: AU-PFIZER INC-2020405651

PATIENT
  Age: 74 Year
  Sex: Male

DRUGS (5)
  1. CELECOXIB. [Suspect]
     Active Substance: CELECOXIB
     Dosage: 200 MG, 2X/DAY
  2. ESOMEPRAZOLE. [Concomitant]
     Active Substance: ESOMEPRAZOLE MAGNESIUM
     Dosage: UNK
  3. FUSIDIC ACID [Concomitant]
     Active Substance: FUSIDIC ACID
     Dosage: UNK
     Route: 048
  4. PARACETAMOL [Concomitant]
     Active Substance: ACETAMINOPHEN
     Dosage: UNK
  5. CLINDAMYCIN. [Concomitant]
     Active Substance: CLINDAMYCIN
     Dosage: UNK

REACTIONS (3)
  - Gastrointestinal neoplasm [Unknown]
  - Intestinal diaphragm disease [Unknown]
  - Small intestinal obstruction [Unknown]
